FAERS Safety Report 13042281 (Version 2)
Quarter: 2017Q1

REPORT INFORMATION
  Report Type: Other
  Country: IT (occurrence: IT)
  Receive Date: 20161219
  Receipt Date: 20170228
  Transmission Date: 20170428
  Serious: Yes (Other)
  Sender: FDA-Public Use
  Company Number: IT-VALIDUS PHARMACEUTICALS LLC-IT-2016VAL003165

PATIENT
  Age: 85 Year
  Sex: Female

DRUGS (1)
  1. FUROSEMIDE. [Suspect]
     Active Substance: FUROSEMIDE
     Indication: PRODUCT USED FOR UNKNOWN INDICATION
     Dosage: 2 DOSAGE FORM;DAILY
     Route: 065

REACTIONS (2)
  - Syncope [Unknown]
  - Confusional state [Unknown]

NARRATIVE: CASE EVENT DATE: 20160130
